FAERS Safety Report 23077239 (Version 3)
Quarter: 2024Q1

REPORT INFORMATION
  Report Type: Spontaneous
  Country: US (occurrence: US)
  Receive Date: 20231018
  Receipt Date: 20240103
  Transmission Date: 20240410
  Serious: Yes (Hospitalization, Other)
  Sender: FDA-Public Use
  Company Number: US-Blueprint Medicines Corporation-1583

PATIENT
  Age: 8 Year
  Sex: Female
  Weight: 25 kg

DRUGS (14)
  1. AYVAKIT [Suspect]
     Active Substance: AVAPRITINIB
     Indication: Brain neoplasm malignant
     Route: 065
     Dates: start: 20230926, end: 20231003
  2. AYVAKIT [Suspect]
     Active Substance: AVAPRITINIB
     Route: 065
     Dates: start: 20230927
  3. AYVAKIT [Suspect]
     Active Substance: AVAPRITINIB
     Route: 065
     Dates: start: 20230926, end: 20231011
  4. AYVAKIT [Suspect]
     Active Substance: AVAPRITINIB
     Route: 065
     Dates: start: 20231030, end: 20231119
  5. IDARUBICIN [Suspect]
     Active Substance: IDARUBICIN
     Indication: Product used for unknown indication
     Route: 065
     Dates: start: 20230921
  6. IDARUBICIN [Suspect]
     Active Substance: IDARUBICIN
     Route: 065
     Dates: start: 20231030
  7. BELINOSTAT [Concomitant]
     Active Substance: BELINOSTAT
     Indication: Product used for unknown indication
     Route: 065
     Dates: start: 20231030, end: 20231103
  8. EXEMESTANE [Concomitant]
     Active Substance: EXEMESTANE
     Indication: Product used for unknown indication
     Route: 065
     Dates: start: 20230921, end: 20231011
  9. EXEMESTANE [Concomitant]
     Active Substance: EXEMESTANE
     Route: 065
     Dates: start: 20231030, end: 20231119
  10. EXEMESTANE [Concomitant]
     Active Substance: EXEMESTANE
     Route: 065
     Dates: start: 20231027
  11. ROMIPLOSTIM [Concomitant]
     Active Substance: ROMIPLOSTIM
     Indication: Product used for unknown indication
     Route: 065
     Dates: start: 20231103
  12. ROMIPLOSTIM [Concomitant]
     Active Substance: ROMIPLOSTIM
     Route: 065
     Dates: start: 20231109
  13. ROMIPLOSTIM [Concomitant]
     Active Substance: ROMIPLOSTIM
     Route: 065
     Dates: start: 20231116
  14. ROMIPLOSTIM [Concomitant]
     Active Substance: ROMIPLOSTIM
     Route: 065
     Dates: start: 20231130

REACTIONS (9)
  - Pyrexia [Unknown]
  - Platelet count decreased [Unknown]
  - Transfusion [Recovered/Resolved]
  - Red blood cell transfusion [Unknown]
  - Neutrophil count decreased [Recovered/Resolved]
  - Mood altered [Recovered/Resolved]
  - Product dose omission issue [Unknown]
  - Inappropriate schedule of product administration [Unknown]
  - Off label use [Unknown]

NARRATIVE: CASE EVENT DATE: 20231003
